FAERS Safety Report 8186868-4 (Version None)
Quarter: 2012Q1

REPORT INFORMATION
  Report Type: 
  Country: None (occurrence: None)
  Receive Date: 20120306
  Receipt Date: 20120301
  Transmission Date: 20120608
  Serious: Yes (Other)
  Sender: FDA-Public Use
  Company Number: US-SP-2011-10356

PATIENT
  Sex: Female

DRUGS (3)
  1. CA+ [Concomitant]
     Route: 065
  2. TUBERSOL [Suspect]
     Indication: TUBERCULIN TEST
     Route: 023
     Dates: start: 20111014, end: 20111014
  3. M.V.I. [Concomitant]
     Route: 065

REACTIONS (1)
  - RASH GENERALISED [None]
